FAERS Safety Report 7618228-6 (Version None)
Quarter: 2011Q3

REPORT INFORMATION
  Report Type: 
  Country: None (occurrence: None)
  Receive Date: 20110718
  Receipt Date: 20110624
  Transmission Date: 20111222
  Serious: Yes (Death)
  Sender: FDA-Public Use
  Company Number: US-GLAXOSMITHKLINE-A0936928A

PATIENT
  Sex: Male
  Weight: 116.8 kg

DRUGS (7)
  1. AVANDIA [Suspect]
     Indication: DIABETES MELLITUS
     Dosage: 4MG PER DAY
     Route: 048
  2. LOTREL [Concomitant]
  3. LIPITOR [Concomitant]
  4. TRENTAL [Concomitant]
  5. HYDROCHLOROTHIAZIDE [Concomitant]
  6. INSULIN [Concomitant]
  7. VIAGRA [Concomitant]

REACTIONS (2)
  - OEDEMA PERIPHERAL [None]
  - CARDIO-RESPIRATORY ARREST [None]
